FAERS Safety Report 7935122-1 (Version None)
Quarter: 2011Q4

REPORT INFORMATION
  Report Type: 
  Country: None (occurrence: None)
  Receive Date: 20111122
  Receipt Date: 20111114
  Transmission Date: 20120403
  Serious: Yes (Hospitalization, Other)
  Sender: FDA-Public Use
  Company Number: US-BAYER-201039696NA

PATIENT
  Age: 43 Year
  Sex: Female
  Weight: 73 kg

DRUGS (18)
  1. YAZ [Suspect]
  2. NIRAVAM [Concomitant]
     Indication: STRESS
  3. HYDROCODONE BITARTRATE AND ACETAMINOPHEN [Concomitant]
     Dosage: UNK
     Dates: start: 20090122
  4. YAZ [Suspect]
     Indication: PREMENSTRUAL SYNDROME
     Dosage: UNK
     Route: 048
     Dates: start: 20060101, end: 20090101
  5. NIRAVAM [Concomitant]
     Indication: ANXIETY
     Dosage: 25 MG, BID
     Route: 048
  6. BUTALBITAL, ASPIRIN, AND CAFFEINE [Concomitant]
     Dosage: 2 DF, TID
     Route: 048
     Dates: start: 20090117
  7. SINGULAIR [Concomitant]
  8. YASMIN [Suspect]
     Indication: PREMENSTRUAL SYNDROME
  9. YASMIN [Suspect]
     Indication: MENOMETRORRHAGIA
  10. YASMIN [Suspect]
     Indication: PRODUCT USED FOR UNKNOWN INDICATION
     Dosage: UNK
     Route: 048
     Dates: start: 20060101, end: 20090101
  11. ZOLPIDEM [Concomitant]
     Indication: INSOMNIA
     Route: 048
  12. ACETAMINOPHEN [Concomitant]
     Route: 048
  13. AMOXICILLIN [Concomitant]
     Dosage: 500 MG, TID
     Route: 048
     Dates: start: 20091120
  14. REGLAN [Concomitant]
     Dosage: 10 MG, QID
     Route: 048
     Dates: start: 20090117
  15. TEMAZEPAM [Concomitant]
  16. HYDROCODONE BITARTRATE AND ACETAMINOPHEN [Concomitant]
     Dosage: UNK
     Route: 048
     Dates: start: 20090117
  17. VICODIN ES [Concomitant]
  18. MAXALT [Concomitant]

REACTIONS (3)
  - CEREBRAL THROMBOSIS [None]
  - BENIGN INTRACRANIAL HYPERTENSION [None]
  - HEADACHE [None]
